FAERS Safety Report 4368164-6 (Version None)
Quarter: 2004Q2

REPORT INFORMATION
  Report Type: 
  Country: None (occurrence: None)
  Receive Date: 20040602
  Receipt Date: 20040213
  Transmission Date: 20050107
  Serious: Yes (Hospitalization)
  Sender: FDA-Public Use
  Company Number: PHBS2004JP02283

PATIENT
  Age: 40 Year
  Sex: Female
  Weight: 53 kg

DRUGS (3)
  1. GLEEVEC [Suspect]
     Indication: GASTROINTESTINAL STROMAL TUMOUR
     Dosage: 400 MG, QD
     Route: 048
     Dates: start: 20021219, end: 20030210
  2. LASIX [Concomitant]
     Dosage: 20 MG, QD
     Route: 048
     Dates: start: 20030106, end: 20030210
  3. MEDICON [Concomitant]
     Dosage: 45 MG/D
     Route: 048
     Dates: start: 20021211, end: 20030322

REACTIONS (6)
  - GASTRECTOMY [None]
  - GRANULOCYTOPENIA [None]
  - LEUKOPENIA [None]
  - MYELODYSPLASTIC SYNDROME [None]
  - OEDEMA [None]
  - SURGERY [None]
